FAERS Safety Report 23544768 (Version 3)
Quarter: 2024Q2

REPORT INFORMATION
  Report Type: Spontaneous
  Country: US (occurrence: US)
  Receive Date: 20240220
  Receipt Date: 20240517
  Transmission Date: 20240716
  Serious: No
  Sender: FDA-Public Use
  Company Number: US-PFIZER INC-202400042766

PATIENT
  Age: 74 Year
  Sex: Male
  Weight: 63.492 kg

DRUGS (3)
  1. PAXLOVID [Suspect]
     Active Substance: NIRMATRELVIR\RITONAVIR
     Indication: COVID-19 treatment
     Dosage: [NIRMATRELVIR 300 MG]/[RITONAVIR 100 MG]; 2X/DAY
     Route: 048
     Dates: start: 20240203, end: 20240207
  2. NAPROXEN [Concomitant]
     Active Substance: NAPROXEN
     Dosage: 200 MG (PM ABOUT 3 DOSES)
     Dates: start: 20240204, end: 20240205
  3. TYLENOL [Concomitant]
     Active Substance: ACETAMINOPHEN
     Dosage: 625 MG (ABOUT 2 DOSES)
     Dates: start: 20240205

REACTIONS (4)
  - COVID-19 [Not Recovered/Not Resolved]
  - Disease recurrence [Not Recovered/Not Resolved]
  - Off label use [Unknown]
  - Drug effective for unapproved indication [Unknown]

NARRATIVE: CASE EVENT DATE: 20240203
